FAERS Safety Report 23772792 (Version 1)
Quarter: 2024Q2

REPORT INFORMATION
  Report Type: Spontaneous
  Country: US (occurrence: None)
  Receive Date: 20240422
  Receipt Date: 20240422
  Transmission Date: 20240715
  Serious: Yes (Other)
  Sender: FDA-Public Use
  Company Number: None

PATIENT
  Age: 68 Year
  Sex: Male
  Weight: 60.75 kg

DRUGS (4)
  1. LEQVIO [Suspect]
     Active Substance: INCLISIRAN SODIUM
  2. ZOLOFT [Concomitant]
  3. COLACE [Concomitant]
     Active Substance: DOCUSATE SODIUM
  4. BABY ASPIRIN [Concomitant]

REACTIONS (11)
  - Back pain [None]
  - Musculoskeletal stiffness [None]
  - Joint stiffness [None]
  - Abdominal pain upper [None]
  - Gastric pH decreased [None]
  - Dyspepsia [None]
  - Abdominal pain [None]
  - Mucous stools [None]
  - Faeces discoloured [None]
  - Fatigue [None]
  - Haematochezia [None]

NARRATIVE: CASE EVENT DATE: 20240402
